FAERS Safety Report 14600508 (Version 1)
Quarter: 2018Q1

REPORT INFORMATION
  Report Type: Spontaneous
  Country: US (occurrence: US)
  Receive Date: 20180305
  Receipt Date: 20180305
  Transmission Date: 20180509
  Serious: Yes (Other)
  Sender: FDA-Public Use
  Company Number: US-GLAXOSMITHKLINE-US2018GSK036028

PATIENT
  Age: 78 Year
  Sex: Female

DRUGS (1)
  1. ANORO ELLIPTA [Suspect]
     Active Substance: UMECLIDINIUM BROMIDE\VILANTEROL TRIFENATATE
     Indication: CHRONIC OBSTRUCTIVE PULMONARY DISEASE
     Dosage: UNK
     Route: 055
     Dates: start: 201702

REACTIONS (7)
  - Skin cancer [Unknown]
  - Cardiac failure congestive [Unknown]
  - Eye operation [Unknown]
  - Gait disturbance [Unknown]
  - Cellulitis [Unknown]
  - Facial operation [Unknown]
  - Surgery [Unknown]

NARRATIVE: CASE EVENT DATE: 201802
